FAERS Safety Report 10057424 (Version 1)
Quarter: 2014Q2

REPORT INFORMATION
  Report Type: Spontaneous
  Country: BR (occurrence: BR)
  Receive Date: 20140403
  Receipt Date: 20140403
  Transmission Date: 20141212
  Serious: Yes (Other)
  Sender: FDA-Public Use
  Company Number: PHHY2014BR038534

PATIENT
  Sex: Male
  Weight: 84 kg

DRUGS (5)
  1. VOLTAREN [Suspect]
     Indication: ARTHRALGIA
     Dosage: 50 MG, PRN AT NIGHT
     Route: 054
  2. VOLTAREN [Suspect]
     Indication: ARTHRITIS
  3. VOLTAREN [Suspect]
     Indication: ARTHRALGIA
     Dosage: 1 DF, DAILY
     Route: 048
  4. VOLTAREN [Suspect]
     Indication: ARTHRITIS
     Dosage: 3 DF, DAILY
     Route: 048
  5. ENALAPRIL [Concomitant]
     Indication: HYPERTENSION
     Dosage: 1 DF, DAILY
     Route: 048

REACTIONS (7)
  - Gout [Not Recovered/Not Resolved]
  - Arthralgia [Not Recovered/Not Resolved]
  - Arthritis [Not Recovered/Not Resolved]
  - Pain in extremity [Not Recovered/Not Resolved]
  - Dyspepsia [Recovered/Resolved]
  - Abdominal pain upper [Recovered/Resolved]
  - Expired product administered [Unknown]
